FAERS Safety Report 10050142 (Version 1)
Quarter: 2014Q2

REPORT INFORMATION
  Report Type: Report from Study
  Country: US (occurrence: US)
  Receive Date: 20140401
  Receipt Date: 20140401
  Transmission Date: 20141212
  Serious: Yes (Other)
  Sender: FDA-Public Use
  Company Number: US-ASTRAZENECA-2014SE20430

PATIENT
  Age: 21 Year
  Sex: Male
  Weight: 74.8 kg

DRUGS (1)
  1. NEXIUM [Suspect]
     Indication: GASTROOESOPHAGEAL REFLUX DISEASE
     Route: 048
     Dates: start: 20140321, end: 20140323

REACTIONS (3)
  - Oropharyngeal spasm [Unknown]
  - Rash generalised [Unknown]
  - Off label use [Recovered/Resolved]
